FAERS Safety Report 15396170 (Version 1)
Quarter: 2018Q3

REPORT INFORMATION
  Report Type: Other
  Country: US (occurrence: US)
  Receive Date: 20180918
  Receipt Date: 20180918
  Transmission Date: 20181010
  Serious: No
  Sender: FDA-Public Use
  Company Number: US-LEADIANT BIOSCIENCES INC-2017STPI000882

PATIENT
  Sex: Female

DRUGS (7)
  1. LEVETIRACETAM. [Concomitant]
     Active Substance: LEVETIRACETAM
  2. PROCHLORPERAZINE. [Concomitant]
     Active Substance: PROCHLORPERAZINE
  3. PREVIDENT [Concomitant]
     Active Substance: SODIUM FLUORIDE
  4. LORAZEPAM. [Concomitant]
     Active Substance: LORAZEPAM
  5. LOMUSTINE. [Concomitant]
     Active Substance: LOMUSTINE
  6. ONDANSETRON [Concomitant]
     Active Substance: ONDANSETRON
  7. MATULANE [Suspect]
     Active Substance: PROCARBAZINE HYDROCHLORIDE
     Indication: BRAIN NEOPLASM MALIGNANT
     Dosage: 100 MG DAILY, DAYS 8 TO 21
     Route: 048
     Dates: start: 20170803

REACTIONS (1)
  - White blood cell count decreased [Not Recovered/Not Resolved]
